FAERS Safety Report 5727733-9 (Version None)
Quarter: 2008Q2

REPORT INFORMATION
  Report Type: 
  Country: None (occurrence: None)
  Receive Date: 20080505
  Receipt Date: 20080423
  Transmission Date: 20081010
  Serious: Yes (Hospitalization)
  Sender: FDA-Public Use
  Company Number: AU-ROCHE-545026

PATIENT
  Sex: Female
  Weight: 42.8 kg

DRUGS (5)
  1. PEGASYS [Suspect]
     Dosage: DOSAGE FORM: INJECTION.
     Route: 058
     Dates: start: 20050901, end: 20060112
  2. RIBAVIRIN [Suspect]
     Dosage: FREQUENCY: DAILY.
     Route: 048
     Dates: start: 20050707, end: 20060110
  3. CODALGIN [Concomitant]
     Dosage: DRUG NAME REPORTED AS CODALGIN FORTE. TDD WAS NOT CLEAR.
     Dates: start: 20050101
  4. CODALGIN [Concomitant]
     Dosage: DRUG NAME REPORTED AS CODALGIN FORTE. TDD WAS NOT CLEAR.
     Dates: start: 20050101
  5. PARACETAMOL [Concomitant]
     Dosage: TDD: 1G PRN
     Dates: start: 20050707

REACTIONS (1)
  - ARTHROPATHY [None]
